FAERS Safety Report 6814560-4 (Version None)
Quarter: 2010Q2

REPORT INFORMATION
  Report Type: 
  Country: None (occurrence: None)
  Receive Date: 20100629
  Receipt Date: 20100622
  Transmission Date: 20101027
  Serious: Yes (Other)
  Sender: FDA-Public Use
  Company Number: VISP-NO-1006S-0309

PATIENT
  Age: 16 Year
  Sex: Male

DRUGS (1)
  1. VISIPAQUE [Suspect]
     Indication: ROAD TRAFFIC ACCIDENT
     Dosage: 120 ML, SINGLE DOSE, I.V.
     Route: 042
     Dates: start: 20100612, end: 20100612

REACTIONS (1)
  - ROAD TRAFFIC ACCIDENT [None]
